FAERS Safety Report 9787020 (Version 1)
Quarter: 2013Q4

REPORT INFORMATION
  Report Type: Spontaneous
  Country: GB (occurrence: GB)
  Receive Date: 20131227
  Receipt Date: 20131227
  Transmission Date: 20140711
  Serious: Yes (Hospitalization)
  Sender: FDA-Public Use
  Company Number: PHHY2013GB149825

PATIENT
  Age: 91 Year
  Sex: 0

DRUGS (5)
  1. LANSOPRAZOLE [Suspect]
     Route: 048
  2. PHENOXYMETHYLPENICILLIN [Suspect]
     Dosage: 500 MG, QID
     Route: 048
     Dates: start: 20111025, end: 20111101
  3. METRONIDAZOLE [Suspect]
     Dosage: 1 DF, UNK
     Dates: start: 20110926, end: 20110927
  4. TRIMETHOPRIM [Suspect]
     Dosage: 200 MG, BID
     Route: 048
     Dates: start: 20110927, end: 20110930
  5. AMOXICILLIN [Concomitant]
     Dosage: 500 MG, TID
     Dates: start: 20110928

REACTIONS (1)
  - Clostridium difficile infection [Recovered/Resolved]
